FAERS Safety Report 4430256-0 (Version None)
Quarter: 2004Q3

REPORT INFORMATION
  Report Type: 
  Country: None (occurrence: None)
  Receive Date: 20040820
  Receipt Date: 20040803
  Transmission Date: 20050211
  Serious: Yes (Other)
  Sender: FDA-Public Use
  Company Number: AU-GLAXOSMITHKLINE-B0341803A

PATIENT
  Age: 63 Year
  Sex: Female
  Weight: 100 kg

DRUGS (7)
  1. SERETIDE [Suspect]
     Indication: ASTHMA
     Dosage: 2U TWICE PER DAY
     Route: 055
     Dates: start: 20040702, end: 20040712
  2. FLIXOTIDE [Concomitant]
  3. AVAPRO [Concomitant]
     Dosage: 300G PER DAY
     Route: 048
  4. CALTRATE [Concomitant]
     Dosage: 600MG PER DAY
     Route: 048
  5. PEPCIDINE [Concomitant]
     Dosage: 40MG TWICE PER DAY
     Route: 048
  6. SINEQUAN [Concomitant]
     Dosage: 25MG AT NIGHT
     Route: 048
  7. VALIUM [Concomitant]
     Dosage: 2MG AS REQUIRED
     Route: 048

REACTIONS (9)
  - ANXIETY [None]
  - ASTHMA [None]
  - BLOOD PRESSURE INCREASED [None]
  - DIZZINESS [None]
  - DRUG INEFFECTIVE [None]
  - DYSPNOEA [None]
  - NAUSEA [None]
  - RESTLESSNESS [None]
  - TREMOR [None]
